FAERS Safety Report 6311817-0 (Version None)
Quarter: 2009Q3

REPORT INFORMATION
  Report Type: 
  Country: None (occurrence: None)
  Receive Date: 20090817
  Receipt Date: 20090804
  Transmission Date: 20100115
  Serious: Yes (Other)
  Sender: FDA-Public Use
  Company Number: GB-GENENTECH-288533

PATIENT
  Age: 52 Year
  Sex: Female

DRUGS (1)
  1. AVASTIN [Suspect]
     Indication: COLON CANCER
     Dosage: UNK
     Route: 065

REACTIONS (1)
  - PALMAR-PLANTAR ERYTHRODYSAESTHESIA SYNDROME [None]
